FAERS Safety Report 16136674 (Version 2)
Quarter: 2019Q2

REPORT INFORMATION
  Report Type: Report from Study
  Country: TW (occurrence: TW)
  Receive Date: 20190329
  Receipt Date: 20190409
  Transmission Date: 20190711
  Serious: Yes (Hospitalization, Other)
  Sender: FDA-Public Use
  Company Number: PHHY2019TW067840

PATIENT
  Age: 38 Year
  Sex: Male

DRUGS (1)
  1. REVOLADE [Suspect]
     Active Substance: ELTROMBOPAG
     Indication: PRODUCT USED FOR UNKNOWN INDICATION
     Dosage: 3 DF, QD
     Route: 048
     Dates: start: 20190220

REACTIONS (4)
  - Gastroenteritis salmonella [Unknown]
  - Aplastic anaemia [Unknown]
  - Sepsis [Unknown]
  - Soft tissue mass [Unknown]

NARRATIVE: CASE EVENT DATE: 20190307
